FAERS Safety Report 23032575 (Version 1)
Quarter: 2023Q4

REPORT INFORMATION
  Report Type: Spontaneous
  Country: US (occurrence: US)
  Receive Date: 20231005
  Receipt Date: 20231005
  Transmission Date: 20240109
  Serious: Yes (Hospitalization)
  Sender: FDA-Public Use
  Company Number: US-PFIZER INC-PV202300088471

PATIENT
  Age: 17 Year
  Sex: Male
  Weight: 51.35 kg

DRUGS (2)
  1. OXBRYTA [Suspect]
     Active Substance: VOXELOTOR
     Dosage: THREE TABLETS (500 MG) ONCE DAILY
     Route: 048
     Dates: start: 202304
  2. OXBRYTA [Suspect]
     Active Substance: VOXELOTOR
     Dosage: 1000 MG, 1X/DAY (2 TABLETS, ONCE DAILY)
     Route: 048

REACTIONS (3)
  - Pain [Unknown]
  - Off label use [Unknown]
  - Product dose omission in error [Unknown]
